FAERS Safety Report 21077258 (Version 3)
Quarter: 2022Q3

REPORT INFORMATION
  Report Type: Spontaneous
  Country: US (occurrence: US)
  Receive Date: 20220713
  Receipt Date: 20220818
  Transmission Date: 20221026
  Serious: Yes (Hospitalization)
  Sender: FDA-Public Use
  Company Number: US-KARYOPHARM-2022KPT000725

PATIENT

DRUGS (15)
  1. XPOVIO [Suspect]
     Active Substance: SELINEXOR
     Indication: Plasma cell myeloma
     Dosage: 60 MG, WEEKLY
     Route: 048
     Dates: start: 20220623, end: 202207
  2. ACYCLOVIR [Concomitant]
     Active Substance: ACYCLOVIR
  3. ATORVASTATIN [Concomitant]
     Active Substance: ATORVASTATIN
  4. DEXAMETHASONE [Concomitant]
     Active Substance: DEXAMETHASONE
  5. FENTANYL [Concomitant]
     Active Substance: FENTANYL
  6. FUROSEMIDE [Concomitant]
     Active Substance: FUROSEMIDE
  7. HUMALOG [Concomitant]
     Active Substance: INSULIN LISPRO
  8. HYDRALAZINE [Concomitant]
     Active Substance: HYDRALAZINE HYDROCHLORIDE
  9. LAMIVUDINE [Concomitant]
     Active Substance: LAMIVUDINE
  10. OLANZAPINE [Concomitant]
     Active Substance: OLANZAPINE
  11. ZOFRAN [Concomitant]
     Active Substance: ONDANSETRON HYDROCHLORIDE
  12. OXYCODONE [Concomitant]
     Active Substance: OXYCODONE
  13. CALCITRIOL [Concomitant]
     Active Substance: CALCITRIOL
  14. POTASSIUM CHLORIDE [Concomitant]
     Active Substance: POTASSIUM CHLORIDE
  15. POMALYST [Concomitant]
     Active Substance: POMALIDOMIDE

REACTIONS (4)
  - COVID-19 [Recovering/Resolving]
  - Pneumonia [Unknown]
  - Nausea [Not Recovered/Not Resolved]
  - Fatigue [Unknown]

NARRATIVE: CASE EVENT DATE: 20220101
